FAERS Safety Report 11247252 (Version 1)
Quarter: 2015Q3

REPORT INFORMATION
  Report Type: Spontaneous
  Country: JP (occurrence: JP)
  Receive Date: 20150708
  Receipt Date: 20150708
  Transmission Date: 20151125
  Serious: Yes (Other)
  Sender: FDA-Public Use
  Company Number: JP-AMGEN-JPNSP2015066502

PATIENT
  Age: 80 Year
  Sex: Male

DRUGS (4)
  1. RANMARK [Suspect]
     Active Substance: DENOSUMAB
     Indication: METASTASES TO BONE
     Dosage: 120 MG, Q4WK
     Route: 023
     Dates: start: 20150530
  2. DENOTAS [Concomitant]
     Active Substance: CALCIUM CARBONATE\CHOLECALCIFEROL\MAGNESIUM CARBONATE
     Dosage: 2 DF, QD
     Route: 048
     Dates: start: 20150530
  3. FLUTAMIDE. [Concomitant]
     Active Substance: FLUTAMIDE
     Indication: PROSTATE CANCER
     Dosage: 125 MG, TID
     Route: 048
  4. LEUPRORELIN ACETATE [Concomitant]
     Active Substance: LEUPROLIDE ACETATE
     Indication: PROSTATE CANCER
     Dosage: 3.75 MG, Q4WK
     Route: 023

REACTIONS (2)
  - Myalgia [Recovering/Resolving]
  - Rhabdomyolysis [Unknown]

NARRATIVE: CASE EVENT DATE: 20150616
